FAERS Safety Report 10915830 (Version 3)
Quarter: 2017Q3

REPORT INFORMATION
  Report Type: Report from Study
  Country: DE (occurrence: DE)
  Receive Date: 20150316
  Receipt Date: 20170814
  Transmission Date: 20171127
  Serious: Yes (Hospitalization)
  Sender: FDA-Public Use
  Company Number: DE-ROCHE-1552194

PATIENT
  Age: 52 Year
  Sex: Female

DRUGS (1)
  1. TOCILIZUMAB. [Suspect]
     Active Substance: TOCILIZUMAB
     Indication: RHEUMATOID ARTHRITIS
     Route: 042

REACTIONS (2)
  - Rheumatoid arthritis [Recovered/Resolved]
  - Rheumatoid nodule [Recovered/Resolved]

NARRATIVE: CASE EVENT DATE: 20170424
